FAERS Safety Report 10148991 (Version 1)
Quarter: 2014Q2

REPORT INFORMATION
  Report Type: Spontaneous
  Country: GB (occurrence: GB)
  Receive Date: 20140502
  Receipt Date: 20140502
  Transmission Date: 20141212
  Serious: Yes (Other)
  Sender: FDA-Public Use
  Company Number: GB-BRISTOL-MYERS SQUIBB COMPANY-20688818

PATIENT
  Age: 69 Year
  Sex: Female

DRUGS (10)
  1. METFORMIN HCL [Suspect]
     Route: 048
     Dates: start: 20100413
  2. AMLODIPINE [Suspect]
     Route: 048
     Dates: start: 1998
  3. CALCICHEW [Suspect]
     Route: 048
     Dates: start: 20100817
  4. LOSARTAN [Suspect]
     Route: 048
     Dates: start: 1998
  5. RAMIPRIL [Suspect]
     Route: 048
     Dates: start: 1998
  6. LETROZOLE [Suspect]
     Route: 048
     Dates: start: 20100817, end: 20120620
  7. BONVIVA [Suspect]
     Indication: METASTATIC PAIN
     Dates: start: 20100828, end: 20120620
  8. BETAHISTINE [Suspect]
     Route: 048
     Dates: start: 1991
  9. FUROSEMIDE [Suspect]
     Route: 048
     Dates: start: 1998
  10. IMATINIB MESILATE [Concomitant]
     Indication: CHRONIC MYELOID LEUKAEMIA

REACTIONS (1)
  - Thrombocytosis [Not Recovered/Not Resolved]
